FAERS Safety Report 5472040-5 (Version None)
Quarter: 2007Q3

REPORT INFORMATION
  Report Type: 
  Country: None (occurrence: None)
  Receive Date: 20070928
  Receipt Date: 20070918
  Transmission Date: 20080115
  Serious: Yes (Other)
  Sender: FDA-Public Use
  Company Number: AT-PFIZER INC-2007078303

PATIENT
  Age: 45 Year
  Sex: Male
  Weight: 100 kg

DRUGS (1)
  1. VORICONAZOLE [Suspect]
     Indication: BRONCHOPULMONARY ASPERGILLOSIS
     Dosage: DAILY DOSE:2MG/KG
     Route: 048

REACTIONS (2)
  - HYPERVENTILATION [None]
  - LOSS OF CONSCIOUSNESS [None]
